FAERS Safety Report 9368248 (Version 1)
Quarter: 2013Q2

REPORT INFORMATION
  Report Type: Spontaneous
  Country: US (occurrence: US)
  Receive Date: 20130625
  Receipt Date: 20130625
  Transmission Date: 20140414
  Serious: No
  Sender: FDA-Public Use
  Company Number: US-ASTELLAS-2013US004059

PATIENT
  Sex: Female
  Weight: 116 kg

DRUGS (11)
  1. VESICARE [Suspect]
     Indication: PRODUCT USED FOR UNKNOWN INDICATION
     Dosage: 20 MG, UID/QD
     Route: 048
  2. PANTOPRAZOLE [Concomitant]
     Indication: GASTROOESOPHAGEAL REFLUX DISEASE
     Dosage: UNK
     Route: 048
  3. TRICOR                             /00090101/ [Concomitant]
     Indication: BLOOD CHOLESTEROL
     Dosage: 48 MG, UID/QD
  4. LIPITOR [Concomitant]
     Indication: BLOOD CHOLESTEROL
     Dosage: 10 MG, UID/QD
     Route: 048
  5. REGLAN                             /00041901/ [Concomitant]
     Indication: GASTROOESOPHAGEAL REFLUX DISEASE
     Dosage: 0 MG, BID
     Route: 048
  6. BETAPACE [Concomitant]
     Indication: ARRHYTHMIA
     Dosage: 120 MG, BID
     Route: 048
  7. SYNTHROID [Concomitant]
     Indication: HYPOTHYROIDISM
     Dosage: 50 MG, UID/QD
     Route: 048
  8. SYNTHROID [Concomitant]
     Dosage: UNK
  9. TYLENOL                            /00020001/ [Concomitant]
     Indication: PAIN
     Dosage: 500 MG, QID
     Route: 048
  10. CALCIUM [Concomitant]
     Indication: PRODUCT USED FOR UNKNOWN INDICATION
     Dosage: UNK
     Route: 048
  11. VITAMINS /90003601/ [Concomitant]
     Indication: PRODUCT USED FOR UNKNOWN INDICATION
     Dosage: UNK
     Route: 048

REACTIONS (2)
  - Drug ineffective [Unknown]
  - Overdose [Unknown]
